FAERS Safety Report 18269425 (Version 1)
Quarter: 2020Q3

REPORT INFORMATION
  Report Type: Spontaneous
  Country: CH (occurrence: CH)
  Receive Date: 20200915
  Receipt Date: 20200915
  Transmission Date: 20201103
  Serious: Yes (Death, Other)
  Sender: FDA-Public Use
  Company Number: CH-JNJFOC-20200921649

PATIENT
  Age: 63 Year
  Sex: Male

DRUGS (38)
  1. DEXAMETHASONE. [Concomitant]
     Active Substance: DEXAMETHASONE
     Dosage: 20 MILLIGRAM, 1/DAY
     Route: 048
     Dates: start: 20190507
  2. TRAMADOL HYDROCHLORIDE. [Suspect]
     Active Substance: TRAMADOL HYDROCHLORIDE
     Indication: PRODUCT USED FOR UNKNOWN INDICATION
     Dosage: 50 MILLIGRAM, 4/DAY
     Route: 048
     Dates: start: 20190412, end: 20190417
  3. IDARUBICIN [Suspect]
     Active Substance: IDARUBICIN
     Dosage: 10 MILLIGRAM, 1/DAY
     Route: 041
     Dates: start: 20190423, end: 20190424
  4. HEPARIN SODIUM. [Suspect]
     Active Substance: HEPARIN SODIUM
     Dosage: 7500 INTERNATIONAL UNIT, 1/DAY
     Route: 058
     Dates: start: 20190421
  5. LORAZEPAM. [Suspect]
     Active Substance: LORAZEPAM
     Dosage: 0.5 MILLIGRAM, 4/DAY
     Route: 048
     Dates: start: 20190414
  6. ONDANSETRON [Suspect]
     Active Substance: ONDANSETRON
     Indication: PRODUCT USED FOR UNKNOWN INDICATION
     Dosage: 8 MILLIGRAM, 3/DAY
     Route: 048
     Dates: start: 20190416, end: 20190418
  7. MORPHINE [Concomitant]
     Active Substance: MORPHINE
     Indication: PRODUCT USED FOR UNKNOWN INDICATION
     Dosage: 2 MILLIGRAM, ONCE
     Route: 041
     Dates: start: 20190414, end: 20190414
  8. VITAMIN B12 [Concomitant]
     Active Substance: CYANOCOBALAMIN
     Indication: PRODUCT USED FOR UNKNOWN INDICATION
     Dosage: 1000 MICROGRAM, ONCE
     Route: 030
     Dates: start: 20190415, end: 20190415
  9. VALACICLOVIR [Suspect]
     Active Substance: VALACYCLOVIR HYDROCHLORIDE
     Indication: PRODUCT USED FOR UNKNOWN INDICATION
     Dosage: 500 MILLIGRAM, 1/DAY
     Route: 048
     Dates: start: 20190409
  10. DEXAMETHASONE. [Concomitant]
     Active Substance: DEXAMETHASONE
     Dosage: 20 MILLIGRAM, 1/DAY
     Route: 041
     Dates: start: 20190416, end: 20190417
  11. CEFEPIME [Concomitant]
     Active Substance: CEFEPIME HYDROCHLORIDE
     Indication: PYREXIA
     Dosage: 2 GRAM, 2/DAY
     Route: 041
     Dates: start: 20190410
  12. FLUCONAZOLE. [Concomitant]
     Active Substance: FLUCONAZOLE
     Indication: PRODUCT USED FOR UNKNOWN INDICATION
     Dosage: 200 MILLIGRAM, 1/DAY
     Route: 048
     Dates: start: 20190412, end: 20190416
  13. IDARUBICIN [Suspect]
     Active Substance: IDARUBICIN
     Indication: ACUTE LYMPHOCYTIC LEUKAEMIA
     Dosage: 10 MILLIGRAM, ONCE
     Route: 041
     Dates: start: 20190416, end: 20190416
  14. ALLOPURINOL. [Suspect]
     Active Substance: ALLOPURINOL
     Dosage: 300 MILLIGRAM, 1/DAY
     Route: 048
     Dates: start: 20190507
  15. LORAZEPAM. [Suspect]
     Active Substance: LORAZEPAM
     Indication: PRODUCT USED FOR UNKNOWN INDICATION
     Dosage: 0.5 MILLIGRAM
     Route: 048
     Dates: start: 20190410
  16. TORASEMIDE [Suspect]
     Active Substance: TORSEMIDE
     Indication: PRODUCT USED FOR UNKNOWN INDICATION
     Dosage: 10 MILLIGRAM, 1/DAY
     Route: 048
     Dates: start: 20190413, end: 20190420
  17. DEXAMETHASONE. [Concomitant]
     Active Substance: DEXAMETHASONE
     Indication: PRODUCT USED FOR UNKNOWN INDICATION
     Dosage: 20 MILLIGRAM, 1/DAY
     Route: 048
     Dates: start: 20190411, end: 20190415
  18. PREGABALIN. [Suspect]
     Active Substance: PREGABALIN
     Indication: RESTLESS LEGS SYNDROME
     Dosage: 50 MILLIGRAM, ONCE
     Route: 048
     Dates: start: 20190416, end: 20190416
  19. PREGABALIN. [Suspect]
     Active Substance: PREGABALIN
     Dosage: 100 MILLIGRAM, 1/DAY
     Route: 041
     Dates: start: 20190502
  20. PARACETAMOL [Suspect]
     Active Substance: ACETAMINOPHEN
     Dosage: 1 GRAM, 4/DAY
     Route: 041
     Dates: start: 20190430
  21. ALLOPURINOL. [Suspect]
     Active Substance: ALLOPURINOL
     Indication: PRODUCT USED FOR UNKNOWN INDICATION
     Dosage: 300 MILLIGRAM, 1/DAY
     Route: 048
     Dates: start: 20190409, end: 20190426
  22. VINCRISTINE [Suspect]
     Active Substance: VINCRISTINE
     Indication: ACUTE LYMPHOCYTIC LEUKAEMIA
     Dosage: 1 MILLIGRAM, ONCE
     Route: 041
     Dates: start: 20190416, end: 20190416
  23. VANCOMYCIN [Suspect]
     Active Substance: VANCOMYCIN
     Indication: PRODUCT USED FOR UNKNOWN INDICATION
     Dosage: 1000 MILLIGRAM, 2/DAY
     Route: 041
     Dates: start: 20190416, end: 20190417
  24. VANCOMYCIN [Suspect]
     Active Substance: VANCOMYCIN
     Dosage: 1000 MILLIGRAM, 2/DAY
     Route: 041
     Dates: start: 20190502, end: 20190508
  25. HEPARIN SODIUM. [Suspect]
     Active Substance: HEPARIN SODIUM
     Indication: PRODUCT USED FOR UNKNOWN INDICATION
     Dosage: 100000 INTERNATIONAL UNIT, 1/DAY
     Route: 058
     Dates: start: 20190410, end: 20190416
  26. ONDANSETRON [Suspect]
     Active Substance: ONDANSETRON
     Dosage: 8 MILLIGRAM, 3/DAY
     Route: 042
     Dates: start: 20190418, end: 20190504
  27. PETHIDINE [Concomitant]
     Active Substance: MEPERIDINE
     Indication: PRODUCT USED FOR UNKNOWN INDICATION
     Dosage: 25 MILLIGRAM, ONCE
     Route: 041
     Dates: start: 20190416, end: 20190416
  28. TRAMADOL HYDROCHLORIDE. [Suspect]
     Active Substance: TRAMADOL HYDROCHLORIDE
     Dosage: 50 MILLIGRAM, AS NEEDED
     Route: 048
     Dates: start: 20190417, end: 20190501
  29. RITUXIMAB. [Suspect]
     Active Substance: RITUXIMAB
     Indication: ACUTE LYMPHOCYTIC LEUKAEMIA
     Dosage: 125 MILLIGRAM/SQ. METER, ONCE
     Route: 041
     Dates: start: 20190416, end: 20190416
  30. PREGABALIN. [Suspect]
     Active Substance: PREGABALIN
     Dosage: 50 MILLIGRAM, 1/DAY
     Route: 041
     Dates: start: 20190420, end: 20190502
  31. PARACETAMOL [Suspect]
     Active Substance: ACETAMINOPHEN
     Indication: PRODUCT USED FOR UNKNOWN INDICATION
     Dosage: 1 GRAM, AS NEEDED
     Route: 041
     Dates: start: 20190410, end: 20190416
  32. TORASEMIDE [Suspect]
     Active Substance: TORSEMIDE
     Dosage: 5 MILLIGRAM, 1/DAY
     Route: 048
     Dates: start: 20190426, end: 20190427
  33. CLEMASTINE [Concomitant]
     Active Substance: CLEMASTINE
     Indication: PRODUCT USED FOR UNKNOWN INDICATION
     Dosage: 4 MILLIGRAM, 2/DAY
     Route: 041
     Dates: start: 20190416, end: 20190416
  34. MORPHINE [Concomitant]
     Active Substance: MORPHINE
     Dosage: 6 MILLIGRAM, ONCE
     Route: 041
     Dates: start: 20190414, end: 20190414
  35. COTRIMOXAZOLE [Concomitant]
     Active Substance: SULFAMETHOXAZOLE\TRIMETHOPRIM
     Indication: PRODUCT USED FOR UNKNOWN INDICATION
     Dosage: 160 MILLIGRAM
     Route: 048
     Dates: start: 20190412, end: 20190415
  36. NEXIUM [Suspect]
     Active Substance: ESOMEPRAZOLE MAGNESIUM
     Indication: PRODUCT USED FOR UNKNOWN INDICATION
     Dosage: 40 MILLIGRAM, 1/DAY
     Route: 041
     Dates: start: 20190411, end: 20190430
  37. RITUXIMAB. [Suspect]
     Active Substance: RITUXIMAB
     Dosage: 300 MILLIGRAM, ONCE
     Route: 041
     Dates: start: 20190417, end: 20190418
  38. VINCRISTINE [Suspect]
     Active Substance: VINCRISTINE
     Dosage: 1 MILLIGRAM, ONCE
     Route: 041
     Dates: start: 20190423, end: 20190423

REACTIONS (2)
  - B-cell lymphoma [Fatal]
  - Hepatocellular injury [Recovered/Resolved]

NARRATIVE: CASE EVENT DATE: 20190417
